FAERS Safety Report 5048010-8 (Version None)
Quarter: 2006Q3

REPORT INFORMATION
  Report Type: 
  Country: None (occurrence: None)
  Receive Date: 20060710
  Receipt Date: 20060710
  Transmission Date: 20061208
  Serious: No
  Sender: FDA-Public Use
  Company Number: None

PATIENT
  Age: 49 Year
  Sex: Female
  Weight: 70.3 kg

DRUGS (1)
  1. TAXUS EXPRESS     PACLITAXEL CORONARY STENT SYSTEM [Suspect]

REACTIONS (2)
  - PROCEDURAL COMPLICATION [None]
  - REMOVAL OF FOREIGN BODY [None]
